FAERS Safety Report 10928196 (Version 1)
Quarter: 2015Q1

REPORT INFORMATION
  Report Type: Spontaneous
  Country: US (occurrence: US)
  Receive Date: 20150319
  Receipt Date: 20150319
  Transmission Date: 20150721
  Serious: No
  Sender: FDA-Public Use
  Company Number: US-BIOGENIDEC-2015BI032986

PATIENT
  Sex: Female

DRUGS (1)
  1. TECFIDERA [Suspect]
     Active Substance: DIMETHYL FUMARATE
     Indication: MULTIPLE SCLEROSIS
     Dates: start: 20130601

REACTIONS (8)
  - Decreased immune responsiveness [Recovered/Resolved with Sequelae]
  - Bronchitis [Unknown]
  - Bronchitis viral [Unknown]
  - Alopecia [Recovered/Resolved with Sequelae]
  - Respiratory tract infection [Unknown]
  - Viral infection [Unknown]
  - Malaise [Unknown]
  - Ovarian cyst ruptured [Unknown]
